FAERS Safety Report 20837506 (Version 2)
Quarter: 2022Q3

REPORT INFORMATION
  Report Type: Report from Study
  Country: BR (occurrence: BR)
  Receive Date: 20220517
  Receipt Date: 20220905
  Transmission Date: 20221027
  Serious: Yes (Hospitalization, Other)
  Sender: FDA-Public Use
  Company Number: BR-ABBVIE-22K-020-4395288-00

PATIENT
  Sex: Female
  Weight: 100 kg

DRUGS (3)
  1. RINVOQ [Suspect]
     Active Substance: UPADACITINIB
     Indication: Rheumatoid arthritis
     Dosage: IN THE MORNING
     Route: 048
     Dates: start: 20211215, end: 202208
  2. CALCIUM [Concomitant]
     Active Substance: CALCIUM
     Indication: Vitamin supplementation
  3. VITAMIN D [Concomitant]
     Active Substance: VITAMIN D NOS
     Indication: Vitamin supplementation

REACTIONS (27)
  - Knee operation [Unknown]
  - Bone tuberculosis [Unknown]
  - Gait inability [Unknown]
  - Pneumonia [Recovered/Resolved]
  - Body height decreased [Unknown]
  - Peripheral swelling [Unknown]
  - Weight increased [Unknown]
  - Pain in extremity [Unknown]
  - Arthralgia [Unknown]
  - Back pain [Unknown]
  - Facial pain [Unknown]
  - Musculoskeletal discomfort [Unknown]
  - Menstrual disorder [Unknown]
  - Malaise [Unknown]
  - Delirium [Unknown]
  - Mobility decreased [Unknown]
  - Musculoskeletal disorder [Unknown]
  - Insomnia [Unknown]
  - Immunodeficiency [Unknown]
  - Hyperhidrosis [Unknown]
  - Pain [Not Recovered/Not Resolved]
  - Cough [Recovering/Resolving]
  - Pyrexia [Unknown]
  - Discouragement [Not Recovered/Not Resolved]
  - Asthenia [Not Recovered/Not Resolved]
  - Renal disorder [Unknown]
  - Musculoskeletal stiffness [Not Recovered/Not Resolved]

NARRATIVE: CASE EVENT DATE: 20210101
